FAERS Safety Report 20322781 (Version 1)
Quarter: 2022Q1

REPORT INFORMATION
  Report Type: Spontaneous
  Country: US (occurrence: None)
  Receive Date: 20220110
  Receipt Date: 20220110
  Transmission Date: 20220423
  Serious: Yes (Disabling)
  Sender: FDA-Public Use
  Company Number: None

PATIENT
  Age: 37 Year
  Sex: Female

DRUGS (1)
  1. NEXPLANON [Suspect]
     Active Substance: ETONOGESTREL
     Dates: start: 20190714

REACTIONS (7)
  - Complication associated with device [None]
  - Dyspareunia [None]
  - Pain in extremity [None]
  - Arthralgia [None]
  - Back pain [None]
  - Gait inability [None]
  - Amenorrhoea [None]

NARRATIVE: CASE EVENT DATE: 20190714
